FAERS Safety Report 11047473 (Version 1)
Quarter: 2015Q2

REPORT INFORMATION
  Report Type: Spontaneous
  Country: US (occurrence: US)
  Receive Date: 20150420
  Receipt Date: 20150420
  Transmission Date: 20150821
  Serious: No
  Sender: FDA-Public Use
  Company Number: US-ABBVIE-15P-163-1337555-00

PATIENT
  Age: 9 Year
  Sex: Male
  Weight: 70.9 kg

DRUGS (1)
  1. LUPRON DEPOT-PED [Suspect]
     Active Substance: LEUPROLIDE ACETATE
     Indication: PRECOCIOUS PUBERTY
     Route: 050
     Dates: start: 201405, end: 201411

REACTIONS (5)
  - Injection site erythema [Recovered/Resolved]
  - Injection site swelling [Recovered/Resolved]
  - Induration [Recovered/Resolved]
  - Abscess sterile [Recovered/Resolved]
  - Abscess sterile [Recovered/Resolved]

NARRATIVE: CASE EVENT DATE: 201405
